FAERS Safety Report 5850700-1 (Version None)
Quarter: 2008Q3

REPORT INFORMATION
  Report Type: 
  Country: None (occurrence: None)
  Receive Date: 20080820
  Receipt Date: 20080818
  Transmission Date: 20090109
  Serious: Yes (Death, Hospitalization)
  Sender: FDA-Public Use
  Company Number: US-CELGENEUS-163-21880-08080821

PATIENT
  Age: 58 Year
  Sex: Female
  Weight: 65.7 kg

DRUGS (4)
  1. REVLIMID [Suspect]
     Indication: MULTIPLE MYELOMA
     Route: 048
     Dates: start: 20060130, end: 20060201
  2. DEXAMETHASONE TAB [Suspect]
     Indication: MULTIPLE MYELOMA
     Route: 048
     Dates: start: 20060130, end: 20060201
  3. MS CONTIN [Concomitant]
     Indication: ARTHRALGIA
     Dosage: 30MG TO 60MG
     Dates: start: 20060130
  4. MS CONTIN [Concomitant]
     Indication: DEPRESSION

REACTIONS (3)
  - LUNG INFILTRATION [None]
  - PNEUMONIA ASPIRATION [None]
  - SEPSIS [None]
